FAERS Safety Report 8057222-0 (Version None)
Quarter: 2012Q1

REPORT INFORMATION
  Report Type: 
  Country: None (occurrence: None)
  Receive Date: 20120119
  Receipt Date: 20120105
  Transmission Date: 20120608
  Serious: Yes (Hospitalization, Other)
  Sender: FDA-Public Use
  Company Number: PHHY2012IT002906

PATIENT
  Age: 35 Year
  Sex: Male

DRUGS (10)
  1. STAVUDINE [Concomitant]
  2. TACROLIMUS [Concomitant]
     Indication: RENAL AND PANCREAS TRANSPLANT
     Dosage: 0.1 MG/KG, BID
  3. INSULIN [Concomitant]
  4. PREDNISONE TAB [Concomitant]
     Indication: RENAL AND PANCREAS TRANSPLANT
     Dosage: 16 MG, UNK
     Route: 048
  5. LAMIVUDINE [Concomitant]
  6. NELFINAVIR MESYLATE [Concomitant]
  7. METHYLPREDNISOLONE [Concomitant]
     Indication: RENAL AND PANCREAS TRANSPLANT
     Dosage: 125 MG, UNK
     Route: 042
  8. PREDNISONE TAB [Concomitant]
     Dosage: 2 MG, UNK
  9. BASILIXIMAB [Suspect]
     Indication: RENAL AND PANCREAS TRANSPLANT
     Dosage: 20 MG, UNK
  10. MYCOPHENOLATE MOFETIL [Concomitant]
     Indication: RENAL AND PANCREAS TRANSPLANT

REACTIONS (17)
  - PANCREATITIS CHRONIC [None]
  - PYREXIA [None]
  - HYPERGLYCAEMIA [None]
  - ESCHERICHIA URINARY TRACT INFECTION [None]
  - TOXICITY TO VARIOUS AGENTS [None]
  - PANCREATITIS ACUTE [None]
  - ESCHERICHIA BACTERAEMIA [None]
  - PNEUMONIA [None]
  - PANCREAS TRANSPLANT REJECTION [None]
  - POSTOPERATIVE ABSCESS [None]
  - GRAFT LOSS [None]
  - HAEMORRHAGE [None]
  - HIV INFECTION [None]
  - PSEUDOMONAL BACTERAEMIA [None]
  - HAEMATOMA [None]
  - KIDNEY TRANSPLANT REJECTION [None]
  - STAPHYLOCOCCAL BACTERAEMIA [None]
